FAERS Safety Report 24532346 (Version 6)
Quarter: 2025Q2

REPORT INFORMATION
  Report Type: Spontaneous
  Country: US (occurrence: US)
  Receive Date: 20241022
  Receipt Date: 20250623
  Transmission Date: 20250717
  Serious: No
  Sender: GILEAD
  Company Number: US-GILEAD-2024-0690984

PATIENT
  Age: 47 Year
  Sex: Male
  Weight: 88.45 kg

DRUGS (3)
  1. LENACAPAVIR [Suspect]
     Active Substance: LENACAPAVIR
     Indication: HIV infection
     Route: 058
     Dates: start: 20240923
  2. LENACAPAVIR [Suspect]
     Active Substance: LENACAPAVIR
     Route: 058
     Dates: start: 20250408
  3. LENACAPAVIR [Suspect]
     Active Substance: LENACAPAVIR
     Route: 058
     Dates: start: 20250404

REACTIONS (5)
  - Injection site discharge [Recovered/Resolved]
  - Injection site swelling [Recovered/Resolved]
  - Injection site discharge [Recovered/Resolved]
  - Wrong technique in product usage process [Recovered/Resolved]
  - Injection site discharge [Unknown]

NARRATIVE: CASE EVENT DATE: 20240923
